FAERS Safety Report 14967842 (Version 2)
Quarter: 2018Q2

REPORT INFORMATION
  Report Type: Spontaneous
  Country: US (occurrence: US)
  Receive Date: 20180604
  Receipt Date: 20180606
  Transmission Date: 20180711
  Serious: Yes (Other)
  Sender: FDA-Public Use
  Company Number: US-PFIZER INC-2018225445

PATIENT
  Age: 53 Year
  Sex: Male

DRUGS (3)
  1. GABAPENTIN. [Suspect]
     Active Substance: GABAPENTIN
     Indication: BIPOLAR DISORDER
     Dosage: 600 MG, 2X/DAY[2 TIMES A DAY]
  2. NEURONTIN [Suspect]
     Active Substance: GABAPENTIN
     Indication: BIPOLAR DISORDER
     Dosage: 600 MG, 2X/DAY[2 TIMES A DAY]
  3. SEROQUEL [Concomitant]
     Active Substance: QUETIAPINE FUMARATE
     Indication: SCHIZOPHRENIA
     Dosage: UNK, 2X/DAY [TWO TIMES A DAY/ ABOUT 600 MG]

REACTIONS (8)
  - Product use in unapproved indication [Unknown]
  - Nerve injury [Unknown]
  - Cognitive disorder [Unknown]
  - Dyskinesia [Unknown]
  - Tourette^s disorder [Unknown]
  - Insomnia [Unknown]
  - Gastrointestinal inflammation [Unknown]
  - Anxiety [Unknown]
